FAERS Safety Report 5709664-3 (Version None)
Quarter: 2008Q2

REPORT INFORMATION
  Report Type: 
  Country: None (occurrence: None)
  Receive Date: 20080418
  Receipt Date: 20080414
  Transmission Date: 20081010
  Serious: No
  Sender: FDA-Public Use
  Company Number: US-BAXTER-2008BH001657

PATIENT
  Sex: Male

DRUGS (2)
  1. HEPARIN SODIUM [Suspect]
     Indication: HYPERCOAGULATION
     Dosage: DOSE UNIT:UNKNOWN
     Route: 065
  2. HEPARIN SODIUM [Suspect]
     Indication: PROPHYLAXIS
     Dosage: DOSE UNIT:UNKNOWN
     Route: 065

REACTIONS (5)
  - ABDOMINAL DISTENSION [None]
  - HEADACHE [None]
  - HUNGER [None]
  - PALPITATIONS [None]
  - RASH [None]
